FAERS Safety Report 4383872-9 (Version None)
Quarter: 2004Q2

REPORT INFORMATION
  Report Type: 
  Country: None (occurrence: None)
  Receive Date: 20040607
  Receipt Date: 20040312
  Transmission Date: 20050107
  Serious: Yes (Other)
  Sender: FDA-Public Use
  Company Number: 361777

PATIENT
  Age: 17 Year
  Sex: Female

DRUGS (2)
  1. ACCUTANE [Suspect]
     Indication: ACNE
     Dosage: 60 MG DAILY ORAL
     Route: 048
     Dates: start: 20021115, end: 20030315
  2. DOXYCYCLINE [Suspect]
     Indication: ACNE
     Dosage: ORAL
     Route: 048
     Dates: end: 20040315

REACTIONS (3)
  - BENIGN INTRACRANIAL HYPERTENSION [None]
  - DRY SKIN [None]
  - HEADACHE [None]
